FAERS Safety Report 7582946-9 (Version None)
Quarter: 2011Q2

REPORT INFORMATION
  Report Type: 
  Country: None (occurrence: None)
  Receive Date: 20110630
  Receipt Date: 20100116
  Transmission Date: 20111010
  Serious: Yes (Death, Other)
  Sender: FDA-Public Use
  Company Number: US-BAYER-201011561NA

PATIENT
  Age: 75 Year
  Sex: Female
  Weight: 80.726 kg

DRUGS (37)
  1. LIPITOR [Concomitant]
     Dosage: 40 MG QD (LONG TERM)
     Route: 048
  2. EPINEPHRINE [Concomitant]
     Dosage: 2 AMPS
     Route: 042
     Dates: start: 20050920
  3. HEPARIN [Concomitant]
     Dosage: 45000 UNITS (PRIME)
     Dates: start: 20050920, end: 20050920
  4. GABAPENTIN [Concomitant]
     Dosage: 100 MG, UNK (LONG TERM)
     Route: 048
  5. LIDOCAINE [Concomitant]
     Dosage: 100 UNK
     Route: 042
     Dates: start: 20050920, end: 20050920
  6. HEPARIN [Concomitant]
     Dosage: 25000 U, UNK
     Route: 042
     Dates: start: 20050920
  7. SOLU-MEDROL [Concomitant]
     Dosage: 1 G, UNK (PRIME)
     Dates: start: 20050920, end: 20050920
  8. INSULIN [Concomitant]
     Dosage: 25 U, UNK
     Route: 042
     Dates: start: 20050920, end: 20050920
  9. METFORMIN HCL [Concomitant]
     Dosage: 500 MG, TWICE DAILY (LONG TERM)
     Route: 048
  10. ASPIRIN [Concomitant]
     Dosage: 80 MG, QD (LONG TERM USE - STOPPED 1 WK PRIOR)
     Route: 048
  11. ALFENTANIL [Concomitant]
     Dosage: UNK
     Route: 042
     Dates: start: 20050920
  12. ROCURONIUM BROMIDE [Concomitant]
     Dosage: 100 MG, UNK
     Route: 042
     Dates: start: 20050920, end: 20050920
  13. ALBUMIN (HUMAN) [Concomitant]
     Dosage: 300 ML, (PRIME)
     Dates: start: 20050920, end: 20050920
  14. ETOMIDATE [Concomitant]
     Dosage: 10 MG, UNK
     Route: 042
     Dates: start: 20050920, end: 20050920
  15. TRASYLOL [Suspect]
     Indication: CORONARY ARTERY BYPASS
     Dosage: 200 ML, (FOR PRIME)
     Route: 042
     Dates: start: 20050920, end: 20050920
  16. ALTACE [Concomitant]
     Dosage: 5 MG, QD (LONG TERM)
     Route: 048
  17. DARVOCET-N 50 [Concomitant]
     Dosage: UNK UNK, PRN PAIN (LONG TERM)
     Route: 048
  18. SODIUM BICARBONATE [Concomitant]
  19. MAGNESIUM SULFATE [Concomitant]
     Dosage: 2 G, UNK
     Route: 042
     Dates: start: 20050920, end: 20050920
  20. NITROGLYCERIN [Concomitant]
     Dosage: 5 MCG/MIN
     Route: 042
     Dates: start: 20050920, end: 20050920
  21. MIDAZOLAM HCL [Concomitant]
     Dosage: 6 MG, UNK
     Route: 042
     Dates: start: 20050920
  22. TRASYLOL [Suspect]
     Dosage: 50 ML/HR
     Route: 042
     Dates: start: 20050920, end: 20050920
  23. IMDUR [Concomitant]
     Dosage: 30 MG, QD
     Route: 048
  24. PITRESSIN [Concomitant]
     Dosage: UNK
     Route: 042
     Dates: start: 20050920
  25. SODIUM BICARBONATE [Concomitant]
     Dosage: 50 MEQ, UNK (PRIME)
     Route: 042
     Dates: start: 20050920
  26. ISOFLURANE [Concomitant]
     Dosage: UNK
     Route: 042
     Dates: start: 20050920
  27. PIROXICAM [Concomitant]
     Dosage: 20 MG, UNK (LONG TERM)
     Route: 048
  28. PLASMALYTE [GLUCOSE,POTASSIUM CHLORIDE] [Concomitant]
     Dosage: 250 UNK
     Route: 042
     Dates: start: 20050920, end: 20050920
  29. PROTAMINE SULFATE [Concomitant]
     Dosage: 250 MG, UNK
     Route: 042
     Dates: start: 20050920, end: 20050920
  30. DOPAMINE HCL [Concomitant]
     Dosage: 3 MCG/KG/MIN
     Route: 042
     Dates: start: 20050920, end: 20050920
  31. EPINEPHRINE [Concomitant]
     Dosage: UNK
     Route: 042
     Dates: start: 20050920
  32. INDERAL [Concomitant]
     Dosage: 30 MG, QD
     Route: 048
     Dates: start: 20050920
  33. FIORINAL [CODEINE PHOSPHATE,DOXYLAMINE SUCCINATE,PARACETAMOL] [Concomitant]
     Dosage: UNK UNK, PRN FOR PAIN (LONG TERM)
     Route: 048
  34. TRASYLOL [Suspect]
     Indication: AORTIC VALVE REPLACEMENT
     Dosage: 200 ML, (LOADING DOSE)
     Route: 042
     Dates: start: 20050920, end: 20050920
  35. CALCIUM CHLORIDE [Concomitant]
     Dosage: 1 AMP, UNK
     Route: 042
     Dates: start: 20050920
  36. CEFAZOLIN [Concomitant]
     Dosage: 1 G, UNK
     Route: 042
     Dates: start: 20050920, end: 20050920
  37. MANNITOL [Concomitant]
     Dosage: 25 G, UNK (PRIME)
     Dates: start: 20050920, end: 20050920

REACTIONS (14)
  - RENAL INJURY [None]
  - ORGAN FAILURE [None]
  - UNEVALUABLE EVENT [None]
  - PAIN [None]
  - CEREBROVASCULAR ACCIDENT [None]
  - ANXIETY [None]
  - RENAL FAILURE [None]
  - RENAL IMPAIRMENT [None]
  - CARDIAC DISORDER [None]
  - DEPRESSION [None]
  - INJURY [None]
  - FEAR [None]
  - ANHEDONIA [None]
  - DEATH [None]
